FAERS Safety Report 14078492 (Version 1)
Quarter: 2017Q4

REPORT INFORMATION
  Report Type: Spontaneous
  Country: US (occurrence: US)
  Receive Date: 20171012
  Receipt Date: 20171012
  Transmission Date: 20180321
  Serious: No
  Sender: FDA-Public Use
  Company Number: US-PFIZER INC-2017294231

PATIENT
  Age: 20 Year
  Sex: Male
  Weight: 92.52 kg

DRUGS (3)
  1. BOSULIF [Suspect]
     Active Substance: BOSUTINIB MONOHYDRATE
     Indication: CHRONIC MYELOID LEUKAEMIA
     Dosage: 600 MG, DAILY (500 AND 100 MG)
     Route: 048
     Dates: start: 20160719
  2. BOSULIF [Suspect]
     Active Substance: BOSUTINIB MONOHYDRATE
     Dosage: 600 MG, 1X/DAY  (500 AND 100 MG)
     Route: 048
     Dates: start: 20160719
  3. BOSULIF [Suspect]
     Active Substance: BOSUTINIB MONOHYDRATE
     Dosage: 600 MG, 1X/DAY  (500 AND 100 MG)
     Route: 048
     Dates: start: 20160719

REACTIONS (2)
  - Intentional product misuse [Unknown]
  - Nausea [Unknown]
